FAERS Safety Report 7720058-1 (Version None)
Quarter: 2011Q3

REPORT INFORMATION
  Report Type: 
  Country: None (occurrence: None)
  Receive Date: 20110831
  Receipt Date: 20110819
  Transmission Date: 20111222
  Serious: Yes (Other)
  Sender: FDA-Public Use
  Company Number: GB-PAR PHARMACEUTICAL, INC-2011SCPR003198

PATIENT

DRUGS (1)
  1. TRAMADOL HCL [Suspect]
     Indication: PAIN MANAGEMENT
     Dosage: UNK, UNKNOWN
     Route: 048

REACTIONS (3)
  - IMMOBILE [None]
  - GAIT DISTURBANCE [None]
  - FREEZING PHENOMENON [None]
